FAERS Safety Report 15300169 (Version 1)
Quarter: 2018Q3

REPORT INFORMATION
  Report Type: Spontaneous
  Country: US (occurrence: US)
  Receive Date: 20180808
  Receipt Date: 20180808
  Transmission Date: 20181010
  Serious: Yes (Other)
  Sender: FDA-Public Use
  Company Number: None

PATIENT
  Age: 67 Year
  Sex: Female
  Weight: 76.5 kg

DRUGS (19)
  1. METFORMIN [Concomitant]
     Active Substance: METFORMIN HYDROCHLORIDE
  2. METOPROLOL. [Concomitant]
     Active Substance: METOPROLOL
  3. PRAVACHOL [Concomitant]
     Active Substance: PRAVASTATIN SODIUM
  4. CALCIUM + D [Concomitant]
     Active Substance: CALCIUM\VITAMIN D
  5. GABAPENTIN. [Concomitant]
     Active Substance: GABAPENTIN
  6. JANUVIA [Concomitant]
     Active Substance: SITAGLIPTIN PHOSPHATE
  7. MORPHINE [Concomitant]
     Active Substance: MORPHINE
  8. ASPIRIN. [Concomitant]
     Active Substance: ASPIRIN
  9. LANTUS [Concomitant]
     Active Substance: INSULIN GLARGINE
  10. LETROZOLE. [Concomitant]
     Active Substance: LETROZOLE
  11. METHIMAZOLE. [Concomitant]
     Active Substance: METHIMAZOLE
  12. RANITIDINE. [Concomitant]
     Active Substance: RANITIDINE
  13. TRADJENTA [Concomitant]
     Active Substance: LINAGLIPTIN
  14. TYKERB [Suspect]
     Active Substance: LAPATINIB DITOSYLATE
     Indication: BREAST CANCER
     Route: 048
     Dates: start: 20140911
  15. CAPECITABINE. [Suspect]
     Active Substance: CAPECITABINE
     Indication: BREAST CANCER
     Route: 048
     Dates: start: 20140911
  16. LEVEMIR [Concomitant]
     Active Substance: INSULIN DETEMIR
  17. LEVOTHYROXINE. [Concomitant]
     Active Substance: LEVOTHYROXINE
  18. LYRICA [Concomitant]
     Active Substance: PREGABALIN
  19. MULTIVITAMINS [Concomitant]
     Active Substance: VITAMINS

REACTIONS (1)
  - Palmar-plantar erythrodysaesthesia syndrome [None]
